FAERS Safety Report 7472237-9 (Version None)
Quarter: 2011Q1

REPORT INFORMATION
  Report Type: 
  Country: None (occurrence: None)
  Receive Date: 20110302
  Receipt Date: 20101101
  Transmission Date: 20110831
  Serious: Yes (Death, Hospitalization)
  Sender: FDA-Public Use
  Company Number: 163-21880-10110182

PATIENT
  Age: 76 Year
  Sex: Male

DRUGS (6)
  1. MEGESTROL ACETATE [Concomitant]
  2. TERAZOSIN HCL [Concomitant]
  3. PERCOCET [Concomitant]
  4. TEMAZEPAM [Concomitant]
  5. REVLIMID [Suspect]
     Indication: MULTIPLE MYELOMA
     Dosage: 15 MG, DAILY FOR 21 DAYS EVERY 28, PO
     Route: 048
     Dates: start: 20090901, end: 20100101
  6. DEXAMETHASONE [Concomitant]

REACTIONS (3)
  - ASTHENIA [None]
  - WEIGHT DECREASED [None]
  - DEATH [None]
